FAERS Safety Report 4761678-6 (Version None)
Quarter: 2005Q3

REPORT INFORMATION
  Report Type: 
  Country: None (occurrence: None)
  Receive Date: 20050906
  Receipt Date: 20050812
  Transmission Date: 20060218
  Serious: Yes (Death, Hospitalization)
  Sender: FDA-Public Use
  Company Number: DE-SANOFI-SYNTHELABO-F01200501558

PATIENT
  Sex: Female
  Weight: 81 kg

DRUGS (6)
  1. CLOPIDOGREL BISULFATE [Suspect]
     Indication: ACUTE CORONARY SYNDROME
     Dosage: UNK
     Dates: start: 20050707
  2. DELIX [Concomitant]
     Indication: CORONARY ARTERY DISEASE
     Dosage: 5 MG
  3. ASPIRIN [Concomitant]
     Indication: CORONARY ARTERY DISEASE
     Dosage: 100 MG
  4. METOPROLOL SUCCINATE [Concomitant]
     Indication: CORONARY ARTERY DISEASE
  5. SORTIS [Concomitant]
     Indication: CORONARY ARTERY DISEASE
     Dosage: 20 MG
  6. DELIX PLUS [Concomitant]
     Indication: CORONARY ARTERY DISEASE
     Dosage: 5 MG

REACTIONS (3)
  - CHEST PAIN [None]
  - LOSS OF CONSCIOUSNESS [None]
  - SUDDEN CARDIAC DEATH [None]
